FAERS Safety Report 4674722-1 (Version None)
Quarter: 2005Q2

REPORT INFORMATION
  Report Type: 
  Country: None (occurrence: None)
  Receive Date: 20050526
  Receipt Date: 20050203
  Transmission Date: 20051028
  Serious: Yes (Hospitalization)
  Sender: FDA-Public Use
  Company Number: PHNU2005DE00839

PATIENT
  Sex: Female
  Weight: 160 kg

DRUGS (7)
  1. RIVOTRIL [Concomitant]
  2. BISOPROLOL FUMARATE [Suspect]
     Indication: HYPERTENSION
     Dosage: 10 MG/DAY
     Route: 048
     Dates: start: 19901201
  3. CARMEN [Suspect]
     Indication: HYPERTENSION
     Dosage: 20 MG/DAY
     Route: 048
     Dates: start: 20040701
  4. DIOVAN [Suspect]
     Dosage: 160 MG/DAY
     Route: 048
     Dates: start: 20010501
  5. TRIAMTERENE AND HYDROCHLOROTHIAZIDE [Suspect]
     Indication: HYPERTENSION
     Route: 048
     Dates: start: 20050101
  6. DOXAZOMERCK [Suspect]
     Indication: HYPERTENSION
     Dosage: 2 MG/DAY
     Route: 048
     Dates: start: 20050101
  7. TEGRETOL [Suspect]
     Indication: CONVULSION
     Dosage: 800 MG/DAY
     Route: 048
     Dates: start: 19850101

REACTIONS (7)
  - BRADYPHRENIA [None]
  - DEMENTIA [None]
  - FATIGUE [None]
  - HYPONATRAEMIA [None]
  - LOSS OF CONSCIOUSNESS [None]
  - MEMORY IMPAIRMENT [None]
  - SOMNOLENCE [None]
